FAERS Safety Report 6156726-5 (Version None)
Quarter: 2009Q2

REPORT INFORMATION
  Report Type: 
  Country: None (occurrence: None)
  Receive Date: 20090416
  Receipt Date: 20090415
  Transmission Date: 20091009
  Serious: Yes (Death, Hospitalization)
  Sender: FDA-Public Use
  Company Number: JP-B.I. PHARMACEUTICALS,INC./RIDGEFIELD-2009-BP-04356NB

PATIENT
  Sex: Female
  Weight: 40 kg

DRUGS (7)
  1. MICARDIS [Suspect]
     Indication: HYPERTENSION
     Dosage: 40MG
     Route: 048
     Dates: start: 20060920, end: 20080312
  2. LASIX [Concomitant]
     Dosage: 60MG
     Route: 048
  3. AMLODIN [Concomitant]
     Indication: HYPERTENSION
     Dosage: 5MG
     Route: 048
  4. CARDENALIN [Concomitant]
     Indication: HYPERTENSION
     Dosage: 1MG
     Route: 048
  5. CIBENOL [Concomitant]
     Indication: PROPHYLAXIS
     Dosage: 100MG
     Route: 048
  6. ZYLORIC [Concomitant]
     Dosage: 100MG
     Route: 048
  7. DYDRENE [Concomitant]
     Dosage: 27MG
     Route: 062

REACTIONS (1)
  - CARDIAC FAILURE [None]
